FAERS Safety Report 9691440 (Version 2)
Quarter: 2013Q4

REPORT INFORMATION
  Report Type: Spontaneous
  Country: NO (occurrence: NO)
  Receive Date: 20131115
  Receipt Date: 20131115
  Transmission Date: 20140711
  Serious: Yes (Disabling, Other)
  Sender: FDA-Public Use
  Company Number: NO-009507513-2012SP025316

PATIENT
  Sex: Female

DRUGS (12)
  1. TRILAFON [Suspect]
     Indication: SCHIZOPHRENIA
     Dosage: 4 MG, QPM
     Route: 065
     Dates: start: 20100420, end: 20100502
  2. TRILAFON [Suspect]
     Dosage: 8 MG, UNKNOWN
     Dates: start: 20100503
  3. TRILAFON [Suspect]
     Dosage: UNK UNK, UNKNOWN
  4. TRILAFON [Suspect]
     Dosage: UNK UNK, UNKNOWN
     Dates: end: 20100929
  5. ZYPREXA [Suspect]
     Indication: SCHIZOPHRENIA
     Dosage: UNK UNK, UNKNOWN
     Route: 065
     Dates: start: 20100107, end: 20100503
  6. RISPERDAL [Suspect]
     Indication: SCHIZOPHRENIA, PARANOID TYPE
     Dosage: UNK UNK, UNKNOWN
     Route: 065
     Dates: start: 20090801, end: 20100106
  7. RISPERDAL [Suspect]
     Dosage: UNK UNK, UNKNOWN
     Route: 065
     Dates: start: 20100107
  8. TRILAFON DECANOATE [Suspect]
     Indication: SCHIZOPHRENIA, PARANOID TYPE
     Dosage: UNK UNK, UNKNOWN
     Route: 065
     Dates: start: 20100929, end: 20101016
  9. TRILAFON DECANOATE [Suspect]
     Dosage: UNK UNK, UNKNOWN
     Route: 065
     Dates: start: 20101017
  10. TRILAFON DECANOATE [Suspect]
     Dosage: UNK UNK, UNKNOWN
     Route: 065
     Dates: start: 201112
  11. VITAMINS (UNSPECIFIED) [Concomitant]
     Indication: PRODUCT USED FOR UNKNOWN INDICATION
     Dosage: UNK UNK, UNKNOWN
  12. OMEGA-3 MARINE TRIGLYCERIDES [Concomitant]
     Indication: PRODUCT USED FOR UNKNOWN INDICATION
     Dosage: UNK UNK, UNKNOWN

REACTIONS (11)
  - Balance disorder [Unknown]
  - Fatigue [Unknown]
  - Weight increased [Not Recovered/Not Resolved]
  - Sedation [Unknown]
  - Extrapyramidal disorder [Unknown]
  - Nervousness [Unknown]
  - Palpitations [Unknown]
  - Galactorrhoea [Unknown]
  - Local swelling [Unknown]
  - Arthralgia [Unknown]
  - Skin striae [Unknown]
